FAERS Safety Report 7715208-7 (Version None)
Quarter: 2011Q3

REPORT INFORMATION
  Report Type: 
  Country: None (occurrence: None)
  Receive Date: 20110829
  Receipt Date: 20110822
  Transmission Date: 20111222
  Serious: Yes (Other)
  Sender: FDA-Public Use
  Company Number: PHHY2011DE76327

PATIENT

DRUGS (1)
  1. EVEROLIMUS [Suspect]
     Dosage: 10 MG/DAY
     Route: 048

REACTIONS (1)
  - NEPHROPATHY TOXIC [None]
